FAERS Safety Report 8571431-3 (Version None)
Quarter: 2012Q3

REPORT INFORMATION
  Report Type: 
  Country: None (occurrence: None)
  Receive Date: 20120806
  Receipt Date: 20120726
  Transmission Date: 20120928
  Serious: Yes (Hospitalization, Other)
  Sender: FDA-Public Use
  Company Number: CA-JNJFOC-20120713871

PATIENT
  Sex: Female
  Weight: 108.2 kg

DRUGS (5)
  1. WELLBUTRIN [Concomitant]
     Route: 065
  2. REMICADE [Suspect]
     Dosage: 2ND DOSE
     Route: 042
     Dates: start: 20110603
  3. IMURAN [Concomitant]
     Route: 065
  4. REMICADE [Suspect]
     Indication: CROHN'S DISEASE
     Route: 042
  5. PROZAC [Concomitant]
     Route: 065

REACTIONS (5)
  - AMENORRHOEA [None]
  - ABDOMINAL PAIN [None]
  - DIARRHOEA [None]
  - PYREXIA [None]
  - ENTERITIS [None]
